FAERS Safety Report 17499225 (Version 1)
Quarter: 2020Q1

REPORT INFORMATION
  Report Type: Spontaneous
  Country: US (occurrence: US)
  Receive Date: 20200305
  Receipt Date: 20200305
  Transmission Date: 20200409
  Serious: No
  Sender: FDA-Public Use
  Company Number: US-BIOGEN-2020BI00845282

PATIENT
  Sex: Male

DRUGS (1)
  1. TECFIDERA [Suspect]
     Active Substance: DIMETHYL FUMARATE
     Indication: PRODUCT USED FOR UNKNOWN INDICATION
     Route: 065

REACTIONS (10)
  - Pruritus [Unknown]
  - Dyspnoea [Unknown]
  - Abdominal discomfort [Unknown]
  - Anxiety [Unknown]
  - Vertigo [Unknown]
  - Depression [Unknown]
  - Retching [Unknown]
  - Blood thyroid stimulating hormone increased [Unknown]
  - Pain in extremity [Unknown]
  - Periorbital swelling [Unknown]
